FAERS Safety Report 7815492-5 (Version None)
Quarter: 2011Q4

REPORT INFORMATION
  Report Type: 
  Country: None (occurrence: None)
  Receive Date: 20111014
  Receipt Date: 20111010
  Transmission Date: 20120403
  Serious: Yes (Other)
  Sender: FDA-Public Use
  Company Number: PHHY2011US69227

PATIENT
  Sex: Female
  Weight: 56.689 kg

DRUGS (3)
  1. LEXAPRO [Concomitant]
     Indication: DEPRESSION
     Dosage: 20 MG, QD
  2. GILENYA [Suspect]
     Indication: MULTIPLE SCLEROSIS
     Dosage: 0.5 MG, QD
     Route: 048
     Dates: start: 20110727, end: 20110728
  3. LEXAPRO [Concomitant]
     Indication: ANXIETY

REACTIONS (4)
  - CHEST DISCOMFORT [None]
  - WHEEZING [None]
  - ASTHMA [None]
  - DYSPNOEA [None]
